FAERS Safety Report 17437858 (Version 4)
Quarter: 2020Q4

REPORT INFORMATION
  Report Type: Report from Study
  Country: US (occurrence: US)
  Receive Date: 20200219
  Receipt Date: 20201229
  Transmission Date: 20210113
  Serious: Yes (Other)
  Sender: FDA-Public Use
  Company Number: NVSC2020US038772

PATIENT
  Sex: Female

DRUGS (4)
  1. ASPIRIN. [Concomitant]
     Active Substance: ASPIRIN
     Indication: PRODUCT USED FOR UNKNOWN INDICATION
     Dosage: UNK
     Route: 065
  2. ENTRESTO [Suspect]
     Active Substance: SACUBITRIL\VALSARTAN
     Indication: CARDIAC FAILURE
     Dosage: 1 DF(24/26 MG), BID
     Route: 048
     Dates: start: 20200113
  3. COREG [Concomitant]
     Active Substance: CARVEDILOL
     Indication: PRODUCT USED FOR UNKNOWN INDICATION
     Dosage: UNK
     Route: 065
  4. PLAVIX [Concomitant]
     Active Substance: CLOPIDOGREL BISULFATE
     Indication: PRODUCT USED FOR UNKNOWN INDICATION
     Dosage: UNK
     Route: 065

REACTIONS (11)
  - Inappropriate schedule of product administration [Unknown]
  - Rhinorrhoea [Unknown]
  - Chest pain [Unknown]
  - Alopecia [Unknown]
  - Depression [Unknown]
  - Depressed mood [Unknown]
  - Fatigue [Unknown]
  - Cardiac failure congestive [Unknown]
  - Spinal fracture [Unknown]
  - Therapeutic response unexpected [Unknown]
  - Throat irritation [Recovered/Resolved]
